FAERS Safety Report 18652391 (Version 3)
Quarter: 2021Q1

REPORT INFORMATION
  Report Type: Spontaneous
  Country: ES (occurrence: ES)
  Receive Date: 20201223
  Receipt Date: 20210203
  Transmission Date: 20210419
  Serious: Yes (Other)
  Sender: FDA-Public Use
  Company Number: ES-AUROBINDO-AUR-APL-2020-062190

PATIENT
  Age: 68 Year
  Sex: Male
  Weight: 43 kg

DRUGS (9)
  1. OXALIPLATIN. [Suspect]
     Active Substance: OXALIPLATIN
     Indication: ADENOCARCINOMA OF COLON
  2. FLUOROURACIL. [Suspect]
     Active Substance: FLUOROURACIL
     Indication: RECTOSIGMOID CANCER STAGE IV
     Dosage: 400 MILLIGRAM/SQ. METER, CYCLICAL
     Route: 065
  3. OXALIPLATIN. [Suspect]
     Active Substance: OXALIPLATIN
     Indication: RECTOSIGMOID CANCER STAGE IV
  4. OXALIPLATIN. [Suspect]
     Active Substance: OXALIPLATIN
     Indication: METASTASES TO LIVER
     Dosage: 85 MILLIGRAM/SQ. METER, CYCLICAL
     Route: 042
  5. CETUXIMAB. [Suspect]
     Active Substance: CETUXIMAB
     Indication: METASTASES TO LIVER
     Dosage: 400 MILLIGRAM/SQ. METER, CYCLICAL
     Route: 042
  6. FLUOROURACIL. [Suspect]
     Active Substance: FLUOROURACIL
     Indication: METASTASES TO LIVER
     Dosage: 1200 MILLIGRAM/SQ. METER, CYCLICAL
     Route: 042
  7. FLUOROURACIL. [Suspect]
     Active Substance: FLUOROURACIL
     Indication: ADENOCARCINOMA OF COLON
  8. CETUXIMAB. [Suspect]
     Active Substance: CETUXIMAB
     Indication: ADENOCARCINOMA OF COLON
     Dosage: 250 MILLIGRAM/SQ. METER
     Route: 065
  9. CETUXIMAB. [Suspect]
     Active Substance: CETUXIMAB
     Indication: RECTOSIGMOID CANCER STAGE IV

REACTIONS (4)
  - Enteritis [Not Recovered/Not Resolved]
  - Gastrointestinal toxicity [Not Recovered/Not Resolved]
  - Necrotising oesophagitis [Not Recovered/Not Resolved]
  - Oesophageal ulcer [Not Recovered/Not Resolved]
